FAERS Safety Report 6307490-8 (Version None)
Quarter: 2009Q3

REPORT INFORMATION
  Report Type: 
  Country: None (occurrence: None)
  Receive Date: 20090813
  Receipt Date: 20090810
  Transmission Date: 20100115
  Serious: Yes (Life-Threatening, Hospitalization, Other)
  Sender: FDA-Public Use
  Company Number: GB-B.I. PHARMACEUTICALS,INC./RIDGEFIELD-2008-UK-01506UK

PATIENT
  Age: 31 Year
  Sex: Female

DRUGS (7)
  1. ATROVENT [Suspect]
     Indication: ASTHMA
  2. AMINOPHYLLINE [Suspect]
     Indication: ASTHMA
     Route: 042
  3. AMOXICILLIN [Suspect]
     Indication: ASTHMA
     Route: 042
  4. CLARITHROMYCIN [Suspect]
     Indication: ASTHMA
     Route: 042
  5. HYDROCORTISONE [Suspect]
     Indication: ASTHMA
     Route: 042
  6. MAGNESIUM SULFATE [Suspect]
     Indication: ASTHMA
  7. SALBUTAMOL SULPHATE [Suspect]
     Indication: ASTHMA
     Dosage: 30 MG

REACTIONS (2)
  - ASTHMA [None]
  - RESPIRATORY FAILURE [None]
